FAERS Safety Report 9890354 (Version 1)
Quarter: 2014Q1

REPORT INFORMATION
  Report Type: Spontaneous
  Country: FR (occurrence: FR)
  Receive Date: 20140212
  Receipt Date: 20140212
  Transmission Date: 20141002
  Serious: Yes (Death, Hospitalization)
  Sender: FDA-Public Use
  Company Number: FR-ROCHE-1347101

PATIENT
  Age: 55 Year
  Sex: 0

DRUGS (8)
  1. MABTHERA [Suspect]
     Indication: WALDENSTROM^S MACROGLOBULINAEMIA
     Route: 042
  2. ADRIAMYCIN [Suspect]
     Indication: WALDENSTROM^S MACROGLOBULINAEMIA
     Route: 042
  3. ONCOVIN [Suspect]
     Indication: WALDENSTROM^S MACROGLOBULINAEMIA
     Route: 042
  4. CHLORAMINOPHENE [Suspect]
     Indication: WALDENSTROM^S MACROGLOBULINAEMIA
     Route: 048
  5. CYCLOPHOSPHAMIDE [Suspect]
     Indication: WALDENSTROM^S MACROGLOBULINAEMIA
     Route: 042
  6. FLUDARABINE [Suspect]
     Indication: WALDENSTROM^S MACROGLOBULINAEMIA
     Route: 042
     Dates: start: 2002
  7. DOXORUBICIN [Concomitant]
  8. PREDNISOLONE [Concomitant]

REACTIONS (1)
  - Acute myeloid leukaemia [Fatal]
